FAERS Safety Report 23633579 (Version 2)
Quarter: 2024Q1

REPORT INFORMATION
  Report Type: Spontaneous
  Country: US (occurrence: US)
  Receive Date: 20240314
  Receipt Date: 20240327
  Transmission Date: 20240410
  Serious: Yes (Hospitalization, Other)
  Sender: FDA-Public Use
  Company Number: US-TEVA-VS-3164428

PATIENT
  Age: 4 Decade
  Sex: Male

DRUGS (7)
  1. TOPIRAMATE [Suspect]
     Active Substance: TOPIRAMATE
     Indication: Lennox-Gastaut syndrome
     Route: 065
  2. RUFINAMIDE [Suspect]
     Active Substance: RUFINAMIDE
     Indication: Lennox-Gastaut syndrome
     Dosage: UNDER A TITRATING-UP SCHEDULE
     Route: 065
  3. ZONISAMIDE [Suspect]
     Active Substance: ZONISAMIDE
     Indication: Lennox-Gastaut syndrome
     Dosage: UNDER A WEANING-OFF SCHEDULE
     Route: 065
  4. FELBAMATE [Suspect]
     Active Substance: FELBAMATE
     Indication: Lennox-Gastaut syndrome
     Dosage: ADMINISTERED THREE TIMES DAILY
     Route: 065
  5. POTASSIUM CITRATE [Suspect]
     Active Substance: POTASSIUM CITRATE
     Indication: Hypocitraturia
     Route: 065
  6. POTASSIUM CITRATE [Suspect]
     Active Substance: POTASSIUM CITRATE
     Indication: Hypocitraturia
     Route: 065
  7. LACOSAMIDE [Suspect]
     Active Substance: LACOSAMIDE
     Indication: Lennox-Gastaut syndrome
     Route: 065

REACTIONS (6)
  - Calculus urinary [Recovered/Resolved]
  - Urine output decreased [Unknown]
  - Drug interaction [Recovered/Resolved]
  - pH urine increased [Unknown]
  - Drug ineffective [Unknown]
  - Hypocitraturia [Recovering/Resolving]
